FAERS Safety Report 9506680 (Version 1)
Quarter: 2013Q3

REPORT INFORMATION
  Report Type: Spontaneous
  Country: KR (occurrence: None)
  Receive Date: 20130904
  Receipt Date: 20130904
  Transmission Date: 20140515
  Serious: Yes (Hospitalization)
  Sender: FDA-Public Use
  Company Number: FK201303854

PATIENT
  Age: 72 Year
  Sex: Male

DRUGS (3)
  1. OXALIPLATIN [Suspect]
     Indication: GASTRIC CANCER
     Route: 042
  2. FLUOROURACIL [Concomitant]
  3. FOLINIC ACID (LEUCOVORIN CLACIUM) (LEUCOVORIN CALCIUM) [Concomitant]

REACTIONS (6)
  - Torsade de pointes [None]
  - Long QT syndrome [None]
  - Syncope [None]
  - Atrioventricular block [None]
  - Ventricular extrasystoles [None]
  - Electrocardiogram R on T phenomenon [None]
